FAERS Safety Report 5812523-9 (Version None)
Quarter: 2008Q3

REPORT INFORMATION
  Report Type: 
  Country: None (occurrence: None)
  Receive Date: 20080717
  Receipt Date: 20080716
  Transmission Date: 20090109
  Serious: Yes (Hospitalization)
  Sender: FDA-Public Use
  Company Number: GB-RANBAXY-2008RR-16095

PATIENT

DRUGS (1)
  1. ACETAMINOPHEN [Suspect]
     Dosage: 100 DF, UNK
     Route: 048

REACTIONS (6)
  - EPISTAXIS [None]
  - JAUNDICE [None]
  - LIVER FUNCTION TEST ABNORMAL [None]
  - OVERDOSE [None]
  - PLATELET TRANSFUSION [None]
  - THROMBOCYTOPENIA [None]
